FAERS Safety Report 7101146-X (Version None)
Quarter: 2010Q4

REPORT INFORMATION
  Report Type: 
  Country: None (occurrence: None)
  Receive Date: 20101105
  Receipt Date: 20101028
  Transmission Date: 20110411
  Serious: Yes (Other)
  Sender: FDA-Public Use
  Company Number: 2010SP054253

PATIENT
  Age: 82 Year
  Sex: Female

DRUGS (7)
  1. MIRALAX [Suspect]
     Indication: CONSTIPATION
     Dosage: .5 DF;QD;PO
     Route: 048
     Dates: end: 20101009
  2. PROTONIX [Concomitant]
  3. QUINAPRIL [Concomitant]
  4. CARTIA XT [Concomitant]
  5. VITAMIN D3 [Concomitant]
  6. MULTI-VITAMIN [Concomitant]
  7. CO Q 10 [Concomitant]

REACTIONS (6)
  - DIARRHOEA [None]
  - FAECES DISCOLOURED [None]
  - INCORRECT DRUG ADMINISTRATION DURATION [None]
  - MELAENA [None]
  - PRURITUS [None]
  - UNDERDOSE [None]
